FAERS Safety Report 10230403 (Version 1)
Quarter: 2014Q2

REPORT INFORMATION
  Report Type: Spontaneous
  Country: US (occurrence: US)
  Receive Date: 20140611
  Receipt Date: 20140611
  Transmission Date: 20141212
  Serious: No
  Sender: FDA-Public Use
  Company Number: US-INCYTE CORPORATION-2014IN000555

PATIENT
  Age: 65 Year
  Sex: Male

DRUGS (5)
  1. JAKAFI [Suspect]
     Indication: MYELOFIBROSIS
     Dosage: 20 MG, BID
     Route: 048
     Dates: start: 20140129
  2. LISINOPRIL [Concomitant]
  3. FERROUS SULFATE [Concomitant]
  4. PAXIL                              /00830802/ [Concomitant]
  5. ALLOPURINOL [Concomitant]

REACTIONS (5)
  - Pain [Unknown]
  - Haemoglobin decreased [Unknown]
  - Platelet count decreased [Unknown]
  - White blood cell count decreased [Unknown]
  - Headache [Unknown]
